FAERS Safety Report 14506831 (Version 1)
Quarter: 2018Q1

REPORT INFORMATION
  Report Type: Spontaneous
  Country: US (occurrence: US)
  Receive Date: 20180208
  Receipt Date: 20180208
  Transmission Date: 20180509
  Serious: No
  Sender: FDA-Public Use
  Company Number: US-009507513-1802USA001303

PATIENT
  Sex: Female

DRUGS (1)
  1. IMPLANON [Suspect]
     Active Substance: ETONOGESTREL
     Indication: CONTRACEPTION
     Dosage: 68 MG, ONE IMPLANT
     Route: 059
     Dates: start: 201003

REACTIONS (2)
  - Incorrect drug administration duration [Not Recovered/Not Resolved]
  - Complication associated with device [Not Recovered/Not Resolved]
